FAERS Safety Report 24587581 (Version 1)
Quarter: 2024Q4

REPORT INFORMATION
  Report Type: Other
  Country: AU (occurrence: AU)
  Receive Date: 20241107
  Receipt Date: 20241107
  Transmission Date: 20250115
  Serious: Yes (Other)
  Sender: ANI
  Company Number: AU-ANIPHARMA-012710

PATIENT
  Age: 71 Year
  Sex: Male

DRUGS (12)
  1. FUROSEMIDE [Suspect]
     Active Substance: FUROSEMIDE
     Indication: Atrial fibrillation
  2. WARFARIN [Concomitant]
     Active Substance: WARFARIN
     Indication: Atrial fibrillation
  3. PERINDOPRIL [Concomitant]
     Active Substance: PERINDOPRIL
     Indication: Atrial fibrillation
  4. PANTOPRAZOLE [Concomitant]
     Active Substance: PANTOPRAZOLE
     Indication: Atrial fibrillation
  5. FUROSEMIDE [Suspect]
     Active Substance: FUROSEMIDE
     Indication: Atrial fibrillation
  6. FUROSEMIDE [Suspect]
     Active Substance: FUROSEMIDE
     Indication: Atrial fibrillation
  7. WARFARIN [Concomitant]
     Active Substance: WARFARIN
     Indication: Atrial fibrillation
  8. WARFARIN [Concomitant]
     Active Substance: WARFARIN
     Indication: Atrial fibrillation
  9. PERINDOPRIL [Concomitant]
     Active Substance: PERINDOPRIL
     Indication: Atrial fibrillation
  10. PERINDOPRIL [Concomitant]
     Active Substance: PERINDOPRIL
     Indication: Atrial fibrillation
  11. PANTOPRAZOLE [Concomitant]
     Active Substance: PANTOPRAZOLE
     Indication: Atrial fibrillation
  12. PANTOPRAZOLE [Concomitant]
     Active Substance: PANTOPRAZOLE
     Indication: Atrial fibrillation

REACTIONS (1)
  - Electrocardiogram QT prolonged [Unknown]
